FAERS Safety Report 8987708 (Version 2)
Quarter: 2013Q1

REPORT INFORMATION
  Report Type: Spontaneous
  Country: US (occurrence: US)
  Receive Date: 20121227
  Receipt Date: 20130213
  Transmission Date: 20140127
  Serious: Yes (Other)
  Sender: FDA-Public Use
  Company Number: US-PFIZER INC-2012302476

PATIENT
  Sex: Male

DRUGS (2)
  1. DEPO-MEDROL [Suspect]
     Indication: BURSITIS
     Dosage: 80 MG IN 1 ML, UNK
  2. DEPO-MEDROL [Suspect]
     Indication: PAIN

REACTIONS (3)
  - Arthritis bacterial [Unknown]
  - Arthritis infective [Unknown]
  - Pain [Unknown]
